FAERS Safety Report 16178960 (Version 5)
Quarter: 2019Q2

REPORT INFORMATION
  Report Type: Spontaneous
  Country: FR (occurrence: FR)
  Receive Date: 20190410
  Receipt Date: 20190522
  Transmission Date: 20190711
  Serious: Yes (Other)
  Sender: FDA-Public Use
  Company Number: FR-ROCHE-2291811

PATIENT
  Age: 26 Year
  Sex: Male

DRUGS (3)
  1. RIVOTRIL [Suspect]
     Active Substance: CLONAZEPAM
     Indication: MYOCLONIC EPILEPSY
     Route: 048
     Dates: start: 201901
  2. RIVOTRIL [Interacting]
     Active Substance: CLONAZEPAM
     Dosage: SUBLINGUAL
     Route: 048
     Dates: start: 20190322
  3. SUBOXONE [Interacting]
     Active Substance: BUPRENORPHINE HYDROCHLORIDE\NALOXONE HYDROCHLORIDE
     Indication: PRODUCT USED FOR UNKNOWN INDICATION
     Dosage: ON WAKING
     Route: 060

REACTIONS (9)
  - Drug interaction [Unknown]
  - Intentional product use issue [Unknown]
  - Intentional product misuse [Unknown]
  - Affective disorder [Recovered/Resolved]
  - Sleep disorder [Recovered/Resolved]
  - Drug abuse [Unknown]
  - Product use issue [Unknown]
  - Off label use [Unknown]
  - Feeling drunk [Recovered/Resolved]
